FAERS Safety Report 23594180 (Version 3)
Quarter: 2024Q1

REPORT INFORMATION
  Report Type: Spontaneous
  Country: ES (occurrence: ES)
  Receive Date: 20240305
  Receipt Date: 20240308
  Transmission Date: 20240410
  Serious: Yes (Other)
  Sender: FDA-Public Use
  Company Number: None

PATIENT
  Age: 18 Year
  Sex: Female

DRUGS (1)
  1. KINERET [Suspect]
     Active Substance: ANAKINRA
     Indication: Behcet^s syndrome
     Dosage: 100 MG DAILY?SOLUTION FOR INJECTION IN PRE-FILLED SYRINGE 7 GRADUATED PRE-FILLED SYRINGES OF 0,67ML
     Dates: start: 20231121, end: 20231204

REACTIONS (3)
  - Cellulitis [Recovered/Resolved]
  - Panniculitis [Recovering/Resolving]
  - Urticaria [Recovering/Resolving]

NARRATIVE: CASE EVENT DATE: 20231127
